FAERS Safety Report 4365305-1 (Version None)
Quarter: 2004Q2

REPORT INFORMATION
  Report Type: 
  Country: None (occurrence: None)
  Receive Date: 20040525
  Receipt Date: 20040316
  Transmission Date: 20050107
  Serious: No
  Sender: FDA-Public Use
  Company Number: PHEH2004US01793

PATIENT
  Age: 73 Year
  Sex: Female
  Weight: 46.3 kg

DRUGS (5)
  1. ZELNORM [Suspect]
     Indication: IRRITABLE BOWEL SYNDROME
     Dosage: 6 MG, BID, ORAL; 6 MG, QD
     Route: 048
     Dates: start: 20040205
  2. CARDIZEM - SLOW RELEASE (DILTIAZEM HYDROCHLORIDE) [Concomitant]
  3. DIGOXIN [Concomitant]
  4. PREVACID [Concomitant]
  5. ROBINUL (GLYCOPYRRONIUM BROMIDE) [Concomitant]

REACTIONS (5)
  - ABDOMINAL PAIN [None]
  - ASTHENIA [None]
  - DIARRHOEA [None]
  - HEART RATE INCREASED [None]
  - HEART RATE IRREGULAR [None]
